FAERS Safety Report 22647515 (Version 1)
Quarter: 2023Q2

REPORT INFORMATION
  Report Type: Other
  Country: ID (occurrence: None)
  Receive Date: 20230628
  Receipt Date: 20230628
  Transmission Date: 20230721
  Serious: Yes (Death, Hospitalization)
  Sender: FDA-Public Use
  Company Number: ID-ROCHE-3377681

PATIENT
  Age: 50 Year
  Sex: Female

DRUGS (6)
  1. OSELTAMIVIR [Suspect]
     Active Substance: OSELTAMIVIR
     Indication: COVID-19
     Route: 065
  2. HYDROXYCHLOROQUINE [Concomitant]
     Active Substance: HYDROXYCHLOROQUINE
     Indication: COVID-19
  3. AZITHROMYCIN [Concomitant]
     Active Substance: AZITHROMYCIN
     Indication: COVID-19
  4. EPIRUBICIN [Concomitant]
     Active Substance: EPIRUBICIN
  5. PAXUS [Concomitant]
  6. TAMOFEN [Concomitant]
     Active Substance: TAMOXIFEN CITRATE

REACTIONS (2)
  - COVID-19 [Fatal]
  - Off label use [Fatal]
